FAERS Safety Report 7994493-0 (Version None)
Quarter: 2011Q4

REPORT INFORMATION
  Report Type: 
  Country: None (occurrence: None)
  Receive Date: 20111220
  Receipt Date: 20111205
  Transmission Date: 20120403
  Serious: Yes (Hospitalization)
  Sender: FDA-Public Use
  Company Number: CA-SANOFI-AVENTIS-2011SA082482

PATIENT
  Age: 60 Year
  Sex: Male
  Weight: 79 kg

DRUGS (5)
  1. FLUOROURACIL [Suspect]
     Indication: COLORECTAL CANCER
     Route: 042
     Dates: start: 20111006, end: 20111129
  2. LEUCOVORIN CALCIUM [Suspect]
     Indication: COLORECTAL CANCER
     Route: 042
     Dates: start: 20111006, end: 20111129
  3. DECADRON [Suspect]
     Route: 065
  4. CALCIUM/MAGNESIUM [Suspect]
     Indication: PROPHYLAXIS
     Route: 042
     Dates: start: 20110922, end: 20111129
  5. OXALIPLATIN [Suspect]
     Indication: COLORECTAL CANCER
     Route: 042
     Dates: start: 20111006, end: 20111129

REACTIONS (2)
  - HICCUPS [None]
  - PLATELET COUNT DECREASED [None]
